FAERS Safety Report 8063688-2 (Version None)
Quarter: 2012Q1

REPORT INFORMATION
  Report Type: 
  Country: None (occurrence: None)
  Receive Date: 20120123
  Receipt Date: 20120118
  Transmission Date: 20120608
  Serious: No
  Sender: FDA-Public Use
  Company Number: US-BAYER-2012-006974

PATIENT
  Age: 81 Year
  Sex: Female
  Weight: 64 kg

DRUGS (2)
  1. ALEVE (CAPLET) [Suspect]
     Dosage: 1 U, BID
     Route: 048
     Dates: start: 20120112, end: 20120116
  2. LEVOTHYROXINE SODIUM [Concomitant]

REACTIONS (2)
  - DIZZINESS [None]
  - FATIGUE [None]
